FAERS Safety Report 13743821 (Version 2)
Quarter: 2017Q3

REPORT INFORMATION
  Report Type: Spontaneous
  Country: US (occurrence: US)
  Receive Date: 20170711
  Receipt Date: 20170809
  Transmission Date: 20171127
  Serious: No
  Sender: FDA-Public Use
  Company Number: US-009507513-1707USA001049

PATIENT
  Age: 60 Year
  Sex: Male

DRUGS (1)
  1. REBETOL [Suspect]
     Active Substance: RIBAVIRIN
     Indication: CHORIOMENINGITIS LYMPHOCYTIC
     Dosage: 600 MG, TWICE DAILY
     Route: 048

REACTIONS (1)
  - Product use in unapproved indication [Unknown]
